FAERS Safety Report 8088601-3 (Version None)
Quarter: 2012Q1

REPORT INFORMATION
  Report Type: 
  Country: None (occurrence: None)
  Receive Date: 20120128
  Receipt Date: 20110420
  Transmission Date: 20120608
  Serious: No
  Sender: FDA-Public Use
  Company Number: US-ABBOTT-11P-163-0720580-00

PATIENT
  Age: 56 Year
  Sex: Female

DRUGS (2)
  1. EVISTA [Concomitant]
     Indication: BREAST CANCER
  2. HUMIRA [Suspect]
     Indication: RHEUMATOID ARTHRITIS
     Dates: start: 20090101

REACTIONS (6)
  - URTICARIA [None]
  - DRUG DOSE OMISSION [None]
  - INFLUENZA LIKE ILLNESS [None]
  - PARANASAL SINUS HYPERSECRETION [None]
  - COUGH [None]
  - DEVICE MALFUNCTION [None]
